FAERS Safety Report 9165666 (Version 1)
Quarter: 2013Q1

REPORT INFORMATION
  Report Type: Spontaneous
  Country: UA (occurrence: None)
  Receive Date: 20130227
  Receipt Date: 20130227
  Transmission Date: 20140127
  Serious: Yes (Disabling, Other)
  Sender: FDA-Public Use
  Company Number: GPV/UKR/130028044

PATIENT
  Age: 74 Year
  Sex: Female

DRUGS (1)
  1. AMLODIPINE [Suspect]
     Route: 048
     Dates: start: 20110207

REACTIONS (6)
  - Headache [None]
  - Dry mouth [None]
  - Abdominal pain [None]
  - Pollakiuria [None]
  - Dyspnoea [None]
  - Heart rate increased [None]
